FAERS Safety Report 7319244-4 (Version None)
Quarter: 2011Q1

REPORT INFORMATION
  Report Type: 
  Country: None (occurrence: None)
  Receive Date: 20110214
  Receipt Date: 20110201
  Transmission Date: 20110831
  Serious: Yes (Hospitalization)
  Sender: FDA-Public Use
  Company Number: 2011-0287

PATIENT
  Age: 11 Year
  Sex: Female
  Weight: 29 kg

DRUGS (2)
  1. INCRELEX [Suspect]
     Indication: INSULIN-LIKE GROWTH FACTOR DECREASED
     Dosage: 0.24 MG/KG (0.12 MG/KG, 2 IN 1 D), SUBCUTANEOUS
     Route: 058
     Dates: start: 20090528, end: 20101117
  2. THYORID HORMONE (THYROID HORMONES) [Concomitant]

REACTIONS (4)
  - VULVAL ABSCESS [None]
  - HAEMOGLOBIN DECREASED [None]
  - PSEUDOMONAS INFECTION [None]
  - LEUKAEMIA [None]
